FAERS Safety Report 7558899-6 (Version None)
Quarter: 2011Q2

REPORT INFORMATION
  Report Type: 
  Country: None (occurrence: None)
  Receive Date: 20110613
  Receipt Date: 20110601
  Transmission Date: 20111010
  Serious: Yes (Hospitalization, Congenital Anomaly, Other)
  Sender: FDA-Public Use
  Company Number: GER/GER/11/0018571

PATIENT
  Sex: Male
  Weight: 2.5 kg

DRUGS (3)
  1. FOLIO (FOLIC ACID) [Concomitant]
  2. DOXEPIN HCL [Suspect]
     Indication: DRUG EXPOSURE DURING PREGNANCY
     Dosage: TRANSPLACENTAL
     Route: 064
     Dates: start: 20100429, end: 20110112
  3. FLUOXETINE HCL [Suspect]
     Indication: DRUG EXPOSURE DURING PREGNANCY
     Dosage: TRANSPLACENTAL
     Route: 064
     Dates: start: 20100429, end: 20110112

REACTIONS (10)
  - HAEMANGIOMA CONGENITAL [None]
  - FOETAL HEART RATE DECELERATION [None]
  - PREMATURE BABY [None]
  - DRUG WITHDRAWAL SYNDROME NEONATAL [None]
  - MATERNAL DRUGS AFFECTING FOETUS [None]
  - FOETAL DISTRESS SYNDROME [None]
  - CAESAREAN SECTION [None]
  - FEELING JITTERY [None]
  - EXTRAPYRAMIDAL DISORDER [None]
  - PREMATURE RUPTURE OF MEMBRANES [None]
